FAERS Safety Report 7366734-4 (Version None)
Quarter: 2011Q1

REPORT INFORMATION
  Report Type: 
  Country: None (occurrence: None)
  Receive Date: 20110322
  Receipt Date: 20110314
  Transmission Date: 20110831
  Serious: Yes (Other)
  Sender: FDA-Public Use
  Company Number: US-PURDUE-USA-2011-0065400

PATIENT
  Sex: Female

DRUGS (1)
  1. COLACE CAPSULES [Suspect]
     Indication: PRODUCT USED FOR UNKNOWN INDICATION
     Dosage: 1 CAPSL, DAILY
     Route: 048
     Dates: start: 20110301

REACTIONS (4)
  - PRODUCT QUALITY ISSUE [None]
  - DYSPHAGIA [None]
  - PHARYNGEAL ERYTHEMA [None]
  - DRY THROAT [None]
